FAERS Safety Report 13291508 (Version 1)
Quarter: 2017Q1

REPORT INFORMATION
  Report Type: Spontaneous
  Country: US (occurrence: US)
  Receive Date: 20170302
  Receipt Date: 20170302
  Transmission Date: 20170428
  Serious: Yes (Life-Threatening)
  Sender: FDA-Public Use
  Company Number: None

PATIENT
  Age: 48 Year
  Sex: Female
  Weight: 47.7 kg

DRUGS (4)
  1. MULTI VITAMIN [Concomitant]
     Active Substance: VITAMINS
  2. VALTREX [Concomitant]
     Active Substance: VALACYCLOVIR HYDROCHLORIDE
  3. LEVOTHYROXINE 0.100MG [Suspect]
     Active Substance: LEVOTHYROXINE
     Indication: THYROID DISORDER
     Dosage: ?          QUANTITY:30 TABLET(S);?
     Route: 048
  4. SYNTHROID [Concomitant]
     Active Substance: LEVOTHYROXINE SODIUM

REACTIONS (15)
  - Joint swelling [None]
  - Chills [None]
  - Muscle spasms [None]
  - Laboratory test interference [None]
  - Headache [None]
  - Dry mouth [None]
  - Tremor [None]
  - Back pain [None]
  - Hyperhidrosis [None]
  - Dysarthria [None]
  - Fatigue [None]
  - Weight decreased [None]
  - Peripheral swelling [None]
  - Product quality issue [None]
  - Amnesia [None]

NARRATIVE: CASE EVENT DATE: 20170227
